FAERS Safety Report 5028042-6 (Version None)
Quarter: 2006Q2

REPORT INFORMATION
  Report Type: 
  Country: None (occurrence: None)
  Receive Date: 20060612
  Receipt Date: 20060530
  Transmission Date: 20061013
  Serious: Yes (Hospitalization, Other)
  Sender: FDA-Public Use
  Company Number: HQWYE619601JUN06

PATIENT
  Age: 68 Year
  Sex: Female

DRUGS (5)
  1. CORDARONE [Suspect]
     Dosage: 200 MG 1X PER 1 DAY
     Route: 048
     Dates: start: 20060228, end: 20060421
  2. DIGOXIN [Suspect]
     Dosage: 0.25 MG 1X PER 1 DAY
     Route: 048
     Dates: start: 20060228, end: 20060421
  3. PREVISCAN (FLUINDIONE) [Concomitant]
  4. LEVOTHYROXINE SODIUM [Concomitant]
  5. OXYBUTYNIN [Concomitant]

REACTIONS (5)
  - BRADYCARDIA [None]
  - DIARRHOEA [None]
  - DRUG INTERACTION [None]
  - THERAPEUTIC AGENT TOXICITY [None]
  - VOMITING [None]
